FAERS Safety Report 4633545-X (Version None)
Quarter: 2005Q2

REPORT INFORMATION
  Report Type: 
  Country: None (occurrence: None)
  Receive Date: 20050331
  Receipt Date: 20041206
  Transmission Date: 20051028
  Serious: Yes (Other)
  Sender: FDA-Public Use
  Company Number: 200415886BCC

PATIENT
  Age: 77 Year
  Sex: Female
  Weight: 72.5755 kg

DRUGS (4)
  1. ALEVE [Suspect]
     Indication: ARTHRALGIA
     Dosage: 220 MG, BID, ORAL
     Route: 048
     Dates: start: 20041101, end: 20041206
  2. SINGULAIR [Concomitant]
  3. ALBUTEROL [Concomitant]
  4. DIOVAN [Concomitant]

REACTIONS (5)
  - ABDOMINAL PAIN UPPER [None]
  - COLD SWEAT [None]
  - DIARRHOEA [None]
  - HAEMATOCHEZIA [None]
  - VOMITING [None]
